FAERS Safety Report 5377772-5 (Version None)
Quarter: 2007Q3

REPORT INFORMATION
  Report Type: 
  Country: None (occurrence: None)
  Receive Date: 20070703
  Receipt Date: 20070624
  Transmission Date: 20080115
  Serious: Yes (Other)
  Sender: FDA-Public Use
  Company Number: US-PFIZER INC-2007052178

PATIENT
  Sex: Male
  Weight: 90 kg

DRUGS (3)
  1. CHANTIX [Suspect]
     Indication: SMOKING CESSATION THERAPY
  2. PREVACID [Concomitant]
  3. MULTIVITAMIN [Concomitant]

REACTIONS (1)
  - RECTAL HAEMORRHAGE [None]
